FAERS Safety Report 5682533-3 (Version None)
Quarter: 2008Q1

REPORT INFORMATION
  Report Type: 
  Country: None (occurrence: None)
  Receive Date: 20080327
  Receipt Date: 20080117
  Transmission Date: 20080703
  Serious: No
  Sender: FDA-Public Use
  Company Number: US-BRISTOL-MYERS SQUIBB COMPANY-13984208

PATIENT
  Age: 62 Year
  Sex: Male

DRUGS (5)
  1. ORENCIA [Suspect]
     Indication: RHEUMATOID ARTHRITIS
     Dosage: INITIALLY 500MG MONTHLY,THEN 750 MG MAINTENANCE. LAST DOSE BEFORE ONSET OF SYPMTOMS-10-JAN-2007.
     Route: 042
     Dates: start: 20061205, end: 20070905
  2. VICODIN [Concomitant]
  3. ZANAFLEX [Concomitant]
  4. PROVIGIL [Concomitant]
  5. CELEBREX [Concomitant]

REACTIONS (1)
  - COLITIS ULCERATIVE [None]
